FAERS Safety Report 11739289 (Version 1)
Quarter: 2015Q4

REPORT INFORMATION
  Report Type: Spontaneous
  Country: US (occurrence: US)
  Receive Date: 20151113
  Receipt Date: 20151113
  Transmission Date: 20160304
  Serious: No
  Sender: FDA-Public Use
  Company Number: US-ROCHE-1346906

PATIENT
  Sex: Female

DRUGS (10)
  1. KADCYLA [Suspect]
     Active Substance: ADO-TRASTUZUMAB EMTANSINE
     Indication: HER-2 POSITIVE BREAST CANCER
     Dosage: EXTENDED TREATMENT
     Route: 042
  2. EFFEXOR XR [Interacting]
     Active Substance: VENLAFAXINE HYDROCHLORIDE
     Indication: DEPRESSION
  3. OXCARBAZEPINE. [Concomitant]
     Active Substance: OXCARBAZEPINE
     Indication: SEIZURE
     Dosage: 3 TABS TIMES DAILY
     Route: 065
  4. CITRACAL [Concomitant]
     Active Substance: CALCIUM CITRATE
     Indication: OSTEOPOROSIS
     Dosage: 315 MG CAL 200 IU D3
     Route: 065
  5. NYSTATIN. [Concomitant]
     Active Substance: NYSTATIN
     Dosage: MORNING + NIGHT
     Route: 065
  6. AMLODIPINE [Concomitant]
     Active Substance: AMLODIPINE BESYLATE
     Indication: HYPERTENSION
     Route: 065
  7. VITAMIN D3 [Concomitant]
     Active Substance: CHOLECALCIFEROL
     Indication: OSTEOPOROSIS
     Route: 065
  8. EFFEXOR XR [Interacting]
     Active Substance: VENLAFAXINE HYDROCHLORIDE
     Indication: HOT FLUSH
     Dosage: 1 OR 2 DAILY
     Route: 065
  9. VITAMIN B6 [Concomitant]
     Active Substance: PYRIDOXINE HYDROCHLORIDE
     Indication: OSTEOPOROSIS
     Route: 065
  10. DEXILANT [Concomitant]
     Active Substance: DEXLANSOPRAZOLE
     Indication: GASTROOESOPHAGEAL REFLUX DISEASE
     Route: 065

REACTIONS (7)
  - Vertigo [Unknown]
  - Drug interaction [Unknown]
  - Tremor [Unknown]
  - Brain neoplasm malignant [Unknown]
  - Central nervous system lesion [Unknown]
  - Liver function test abnormal [Unknown]
  - Urinary tract disorder [Unknown]
